FAERS Safety Report 20170340 (Version 1)
Quarter: 2021Q4

REPORT INFORMATION
  Report Type: Spontaneous
  Country: FR (occurrence: FR)
  Receive Date: 20211210
  Receipt Date: 20211210
  Transmission Date: 20220303
  Serious: Yes (Death, Other)
  Sender: FDA-Public Use
  Company Number: FR-BAXTER-2021BAX033679

PATIENT

DRUGS (4)
  1. CISPLATIN [Suspect]
     Active Substance: CISPLATIN
     Indication: Metastatic gastric cancer
     Dosage: 7.5 MG/SQUARE METER BODY SURFACE
     Route: 033
  2. SODIUM CHLORIDE [Suspect]
     Active Substance: SODIUM CHLORIDE
     Indication: Metastatic gastric cancer
     Dosage: 150 MILLILITER
     Route: 033
  3. SODIUM CHLORIDE [Suspect]
     Active Substance: SODIUM CHLORIDE
     Dosage: 50 MILLILITER
     Route: 033
  4. DOXORUBICIN HYDROCHLORIDE [Suspect]
     Active Substance: DOXORUBICIN HYDROCHLORIDE
     Indication: Metastatic gastric cancer
     Dosage: 1.5 MILLIGRAM/SQ. METER,BODY SURFACE
     Route: 033

REACTIONS (1)
  - Ileus paralytic [Fatal]
